FAERS Safety Report 4265489-X (Version None)
Quarter: 2004Q1

REPORT INFORMATION
  Report Type: 
  Country: None (occurrence: None)
  Receive Date: 20040107
  Receipt Date: 20040107
  Transmission Date: 20041129
  Serious: No
  Sender: FDA-Public Use
  Company Number: None

PATIENT

DRUGS (3)
  1. FE-TINIC 150 [Suspect]
     Dosage: CAPSULE
  2. NIFEREX [Suspect]
  3. FERREX 150 MG [Suspect]
     Dosage: CAPSULE

REACTIONS (1)
  - MEDICATION ERROR [None]
